FAERS Safety Report 20436037 (Version 1)
Quarter: 2022Q1

REPORT INFORMATION
  Report Type: Report from Study
  Country: CA (occurrence: CA)
  Receive Date: 20220207
  Receipt Date: 20220207
  Transmission Date: 20220423
  Serious: Yes (Other)
  Sender: FDA-Public Use
  Company Number: CA-JNJFOC-20220204477

PATIENT
  Age: 25 Year
  Sex: Male

DRUGS (1)
  1. SIMPONI [Suspect]
     Active Substance: GOLIMUMAB
     Indication: Crohn^s disease
     Dosage: STRENGTH = 50 MG
     Route: 058
     Dates: start: 20210730

REACTIONS (4)
  - Haematochezia [Unknown]
  - Abnormal faeces [Unknown]
  - Abdominal pain [Unknown]
  - Stress [Unknown]

NARRATIVE: CASE EVENT DATE: 20220101
